FAERS Safety Report 8318521-8 (Version None)
Quarter: 2012Q2

REPORT INFORMATION
  Report Type: 
  Country: None (occurrence: None)
  Receive Date: 20120427
  Receipt Date: 20120424
  Transmission Date: 20120825
  Serious: Yes (Hospitalization)
  Sender: FDA-Public Use
  Company Number: JP-GLAXOSMITHKLINE-B0787539A

PATIENT
  Sex: Female

DRUGS (3)
  1. ARIXTRA [Suspect]
     Indication: DEEP VEIN THROMBOSIS
     Dosage: 5MG PER DAY
     Route: 058
     Dates: start: 20111202, end: 20111208
  2. WARFARIN SODIUM [Suspect]
     Indication: PRODUCT USED FOR UNKNOWN INDICATION
     Dosage: 3MG PER DAY
     Route: 048
     Dates: start: 20111202, end: 20111203
  3. WARFARIN SODIUM [Suspect]
     Dosage: 1.5MG PER DAY
     Route: 048
     Dates: start: 20111204, end: 20111209

REACTIONS (3)
  - COMPARTMENT SYNDROME [None]
  - SWELLING [None]
  - HAEMATOMA [None]
